FAERS Safety Report 14825903 (Version 3)
Quarter: 2018Q2

REPORT INFORMATION
  Report Type: Spontaneous
  Country: US (occurrence: US)
  Receive Date: 20180430
  Receipt Date: 20180516
  Transmission Date: 20180711
  Serious: No
  Sender: FDA-Public Use
  Company Number: US-PFIZER INC-2018172036

PATIENT
  Sex: Female

DRUGS (3)
  1. ADVIL LIQUI-GELS [Suspect]
     Active Substance: IBUPROFEN
     Indication: HEADACHE
     Dosage: UNK
     Dates: start: 20171106, end: 20180425
  2. TYLENOL [Concomitant]
     Active Substance: ACETAMINOPHEN
     Indication: HEADACHE
     Dosage: 1 DF, DAILY
  3. ADVIL LIQUI-GELS [Suspect]
     Active Substance: IBUPROFEN
     Dosage: 400 MG, DAILY (TAKE 1 200MG OF IBUPROFEN/ 2 IBUPROFEN / DAY (ADVIL))

REACTIONS (2)
  - Intentional product use issue [Unknown]
  - Abdominal discomfort [Recovered/Resolved]

NARRATIVE: CASE EVENT DATE: 20171113
